FAERS Safety Report 5464475-1 (Version None)
Quarter: 2007Q3

REPORT INFORMATION
  Report Type: 
  Country: None (occurrence: None)
  Receive Date: 20070921
  Receipt Date: 20070913
  Transmission Date: 20080115
  Serious: Yes (Hospitalization)
  Sender: FDA-Public Use
  Company Number: ES-SHR-ES-2007-035201

PATIENT
  Age: 21 Year
  Sex: Female

DRUGS (4)
  1. YASMIN 30 (21) (SH T 470)/ PETIBELLE [Suspect]
     Indication: CONTRACEPTION
     Route: 048
     Dates: start: 20030101, end: 20070626
  2. LEXATIN [Concomitant]
     Dosage: 4.5 MG, 3X/WEEK
  3. AMOXICILLIN [Concomitant]
     Dosage: 1 G, 2X/DAY
     Dates: start: 20070604, end: 20070610
  4. CIPROFLOXACIN [Concomitant]
     Dosage: 1 G, 2X/DAY
     Dates: start: 20070604, end: 20070610

REACTIONS (1)
  - THROMBOTIC THROMBOCYTOPENIC PURPURA [None]
